FAERS Safety Report 4968394-6 (Version None)
Quarter: 2006Q2

REPORT INFORMATION
  Report Type: 
  Country: None (occurrence: None)
  Receive Date: 20060410
  Receipt Date: 20060331
  Transmission Date: 20061013
  Serious: Yes (Hospitalization)
  Sender: FDA-Public Use
  Company Number: RO-ABBOTT-06P-135-0329681-00

PATIENT
  Sex: Female

DRUGS (1)
  1. DEPAKENE [Suspect]
     Indication: EPILEPSY
     Route: 048
     Dates: start: 20000101

REACTIONS (3)
  - CHEST X-RAY ABNORMAL [None]
  - PHARYNGITIS [None]
  - PYREXIA [None]
